FAERS Safety Report 6244035-5 (Version None)
Quarter: 2009Q2

REPORT INFORMATION
  Report Type: 
  Country: None (occurrence: None)
  Receive Date: 20090625
  Receipt Date: 20070517
  Transmission Date: 20091009
  Serious: Yes (Other)
  Sender: FDA-Public Use
  Company Number: US-ASTRAZENECA-2006UW27891

PATIENT
  Age: 30 Year
  Sex: Female
  Weight: 124.3 kg

DRUGS (10)
  1. SEROQUEL [Suspect]
     Indication: PSYCHOTIC DISORDER
     Dosage: 100 MG - 1000 MG DAILY
     Route: 048
     Dates: start: 20020830
  2. SEROQUEL [Suspect]
     Dosage: 100MG, 500 MG
     Route: 048
  3. GEODON [Concomitant]
     Dates: start: 19960101, end: 20050101
  4. HALDOL [Concomitant]
     Dates: start: 19960101, end: 20050101
  5. THORAZINE [Concomitant]
     Dates: start: 19960101, end: 20050101
  6. ZYPREXA [Concomitant]
     Dates: start: 19960101, end: 20050101
  7. ELAVIL [Concomitant]
     Dates: start: 20040728
  8. LISINOPRIL [Concomitant]
     Dates: start: 20050623
  9. ALBUTEROL [Concomitant]
     Dosage: 2 PUFFS 4 TIMES A DAY IF REQUIRED
     Dates: start: 20061115
  10. COGENTIN [Concomitant]
     Route: 048
     Dates: start: 20030319

REACTIONS (3)
  - DIABETES MELLITUS [None]
  - DIABETES MELLITUS INADEQUATE CONTROL [None]
  - DIABETIC NEUROPATHY [None]
